FAERS Safety Report 6441552-X (Version None)
Quarter: 2009Q4

REPORT INFORMATION
  Report Type: 
  Country: None (occurrence: None)
  Receive Date: 20091116
  Receipt Date: 20091105
  Transmission Date: 20100525
  Serious: Yes (Other)
  Sender: FDA-Public Use
  Company Number: US-JNJFOC-20091102811

PATIENT
  Sex: Female

DRUGS (4)
  1. REMICADE [Suspect]
     Route: 042
     Dates: start: 20090606, end: 20090912
  2. REMICADE [Suspect]
     Route: 042
     Dates: start: 20090606, end: 20090912
  3. REMICADE [Suspect]
     Route: 042
     Dates: start: 20090606, end: 20090912
  4. REMICADE [Suspect]
     Indication: COLITIS ULCERATIVE
     Route: 042
     Dates: start: 20090606, end: 20090912

REACTIONS (1)
  - LUPUS-LIKE SYNDROME [None]
